FAERS Safety Report 11556782 (Version 1)
Quarter: 2015Q3

REPORT INFORMATION
  Report Type: Spontaneous
  Country: FR (occurrence: FR)
  Receive Date: 20150925
  Receipt Date: 20150925
  Transmission Date: 20151125
  Serious: Yes (Other)
  Sender: FDA-Public Use
  Company Number: FR-BRISTOL-MYERS SQUIBB COMPANY-BMS-2015-063886

PATIENT
  Sex: Female

DRUGS (8)
  1. VITAMIN B6 [Concomitant]
     Active Substance: PYRIDOXINE HYDROCHLORIDE
     Indication: PRODUCT USED FOR UNKNOWN INDICATION
     Route: 065
  2. VIT B1 [Concomitant]
     Indication: PRODUCT USED FOR UNKNOWN INDICATION
     Dosage: UNK
     Route: 065
  3. LEVOTHYROX [Concomitant]
     Active Substance: LEVOTHYROXINE
     Indication: PRODUCT USED FOR UNKNOWN INDICATION
     Dosage: UNK
     Route: 048
  4. FLUOXETINE [Interacting]
     Active Substance: FLUOXETINE\FLUOXETINE HYDROCHLORIDE
     Indication: DEPRESSION
     Dosage: UNK
     Route: 048
  5. RULID [Concomitant]
     Active Substance: ROXITHROMYCIN
     Indication: PRODUCT USED FOR UNKNOWN INDICATION
     Dosage: UNK
     Route: 048
     Dates: end: 20150909
  6. SULFARLEM [Concomitant]
     Active Substance: ANETHOLTRITHION
     Indication: PRODUCT USED FOR UNKNOWN INDICATION
     Route: 048
  7. ABILIFY [Suspect]
     Active Substance: ARIPIPRAZOLE
     Indication: BORDERLINE PERSONALITY DISORDER
     Dosage: 5 MG, QD
     Route: 048
     Dates: start: 20150912, end: 20150914
  8. TERCIAN                            /00759301/ [Interacting]
     Active Substance: CYAMEMAZINE
     Indication: PRODUCT USED FOR UNKNOWN INDICATION
     Dosage: 100 MG, QD
     Route: 048
     Dates: start: 20150909, end: 20150914

REACTIONS (3)
  - Urinary retention [Recovered/Resolved]
  - Drug interaction [Unknown]
  - Off label use [Unknown]
